FAERS Safety Report 23977458 (Version 1)
Quarter: 2024Q2

REPORT INFORMATION
  Report Type: Spontaneous
  Country: US (occurrence: US)
  Receive Date: 20240614
  Receipt Date: 20240614
  Transmission Date: 20240715
  Serious: No
  Sender: FDA-Public Use
  Company Number: US-JNJFOC-20240588164

PATIENT
  Age: 69 Year
  Sex: Male

DRUGS (8)
  1. IMODIUM [Suspect]
     Active Substance: LOPERAMIDE HYDROCHLORIDE
     Indication: Diarrhoea
     Dosage: 1 TABLET DAILY
     Route: 065
     Dates: start: 2024
  2. TREPROSTINIL SODIUM [Concomitant]
     Active Substance: TREPROSTINIL SODIUM
     Indication: Pulmonary arterial hypertension
     Dosage: 0.015 UG/KG
     Route: 042
     Dates: start: 202404, end: 202404
  3. TREPROSTINIL SODIUM [Concomitant]
     Active Substance: TREPROSTINIL SODIUM
     Dosage: 0.021 UG/KG
     Route: 042
     Dates: start: 202404, end: 202404
  4. TREPROSTINIL SODIUM [Concomitant]
     Active Substance: TREPROSTINIL SODIUM
     Dosage: 0.030 UG/KG
     Route: 042
     Dates: start: 202404, end: 202404
  5. TREPROSTINIL SODIUM [Concomitant]
     Active Substance: TREPROSTINIL SODIUM
     Dosage: 0.039 UG/KG
     Route: 042
     Dates: start: 202404
  6. TREPROSTINIL SODIUM [Concomitant]
     Active Substance: TREPROSTINIL SODIUM
     Dosage: 0.048 UG/KG
     Route: 042
  7. TREPROSTINIL SODIUM [Concomitant]
     Active Substance: TREPROSTINIL SODIUM
     Dosage: 0.060 UG/KG
     Route: 042
  8. TREPROSTINIL SODIUM [Concomitant]
     Active Substance: TREPROSTINIL SODIUM
     Route: 042
     Dates: start: 202404

REACTIONS (2)
  - Faeces soft [Unknown]
  - Incorrect dose administered [Unknown]

NARRATIVE: CASE EVENT DATE: 20240101
